FAERS Safety Report 9169233 (Version 2)
Quarter: 2014Q3

REPORT INFORMATION
  Report Type: Report from Study
  Country: FR (occurrence: FR)
  Receive Date: 20130318
  Receipt Date: 20140905
  Transmission Date: 20150326
  Serious: Yes (Hospitalization, Other)
  Sender: FDA-Public Use
  Company Number: FR-ROCHE-1199829

PATIENT
  Age: 64 Year
  Sex: Female
  Weight: 68 kg

DRUGS (35)
  1. ROACTEMRA [Suspect]
     Active Substance: TOCILIZUMAB
     Route: 041
     Dates: start: 20110223
  2. LYSANXIA [Concomitant]
     Active Substance: PRAZEPAM
     Dosage: DOSE- 1/2 DF
     Route: 065
     Dates: start: 20110701
  3. ATENOLOL. [Concomitant]
     Active Substance: ATENOLOL
     Route: 065
     Dates: start: 20120109
  4. EUPANTOL [Concomitant]
     Active Substance: PANTOPRAZOLE SODIUM
     Route: 065
  5. ROACTEMRA [Suspect]
     Active Substance: TOCILIZUMAB
     Indication: RHEUMATOID ARTHRITIS
     Route: 041
     Dates: start: 20110121, end: 20110530
  6. ROACTEMRA [Suspect]
     Active Substance: TOCILIZUMAB
     Route: 041
     Dates: start: 20110530, end: 20110701
  7. METFORMIN [Concomitant]
     Active Substance: METFORMIN HYDROCHLORIDE
     Route: 065
  8. GLUCOPHAGE [Concomitant]
     Active Substance: METFORMIN HYDROCHLORIDE
     Route: 065
     Dates: start: 20110701
  9. MOPRAL [Concomitant]
     Active Substance: OMEPRAZOLE SODIUM
     Route: 065
     Dates: start: 20121206
  10. HEMI-DAONIL [Concomitant]
     Active Substance: GLYBURIDE
     Dosage: DOSE- 1/2 DF
     Route: 065
     Dates: start: 20120109
  11. HEMI-DAONIL [Concomitant]
     Active Substance: GLYBURIDE
     Dosage: DOSE- 1/2 DF
     Route: 065
     Dates: start: 20130613
  12. RITUXIMAB [Suspect]
     Active Substance: RITUXIMAB
     Indication: RHEUMATOID ARTHRITIS
     Route: 065
  13. CORTANCYL [Concomitant]
     Active Substance: PREDNISONE
     Route: 065
  14. AMLOR [Concomitant]
     Active Substance: AMLODIPINE BESYLATE
     Route: 065
     Dates: start: 20130613
  15. DANOL [Concomitant]
     Route: 065
  16. ATENOLOL. [Concomitant]
     Active Substance: ATENOLOL
     Route: 065
     Dates: start: 20121206
  17. ROACTEMRA [Suspect]
     Active Substance: TOCILIZUMAB
     Route: 041
     Dates: start: 20110424
  18. AMLOR [Concomitant]
     Active Substance: AMLODIPINE BESYLATE
     Route: 065
     Dates: start: 20121206
  19. TARDYFERON (FRANCE) [Concomitant]
     Route: 065
     Dates: start: 20121206
  20. GLUCOPHAGE [Concomitant]
     Active Substance: METFORMIN HYDROCHLORIDE
     Route: 065
     Dates: start: 20120109
  21. GLUCOPHAGE [Concomitant]
     Active Substance: METFORMIN HYDROCHLORIDE
     Route: 065
     Dates: start: 20121206
  22. MOPRAL [Concomitant]
     Active Substance: OMEPRAZOLE SODIUM
     Route: 065
     Dates: start: 20110701
  23. MOPRAL [Concomitant]
     Active Substance: OMEPRAZOLE SODIUM
     Route: 065
     Dates: start: 20120109
  24. MOPRAL [Concomitant]
     Active Substance: OMEPRAZOLE SODIUM
     Route: 065
     Dates: start: 20130613
  25. BIPROLOL [Concomitant]
  26. ROACTEMRA [Suspect]
     Active Substance: TOCILIZUMAB
     Route: 041
     Dates: start: 20110323
  27. TENORMIN [Concomitant]
     Active Substance: ATENOLOL
     Route: 065
  28. AMLOR [Concomitant]
     Active Substance: AMLODIPINE BESYLATE
     Route: 065
     Dates: start: 20110701
  29. AMLOR [Concomitant]
     Active Substance: AMLODIPINE BESYLATE
     Route: 065
     Dates: start: 20120109
  30. LYSANXIA [Concomitant]
     Active Substance: PRAZEPAM
     Dosage: DOSE- 1/2 DF
     Route: 065
     Dates: start: 20130613
  31. ATENOLOL. [Concomitant]
     Active Substance: ATENOLOL
     Route: 065
     Dates: start: 20110701
  32. ATENOLOL. [Concomitant]
     Active Substance: ATENOLOL
     Route: 065
     Dates: start: 20130613
  33. HEMI-DAONIL [Concomitant]
     Active Substance: GLYBURIDE
     Route: 065
     Dates: start: 20110701
  34. BI-PROFENID [Concomitant]
     Active Substance: KETOPROFEN
     Route: 065
  35. GLUCOPHAGE [Concomitant]
     Active Substance: METFORMIN HYDROCHLORIDE
     Route: 065
     Dates: start: 20130613

REACTIONS (8)
  - Hypertension [Recovered/Resolved]
  - Anaemia [Recovered/Resolved]
  - Rheumatoid arthritis [Recovered/Resolved]
  - Leukopenia [Recovered/Resolved]
  - Eye pain [Recovered/Resolved]
  - Epistaxis [Recovered/Resolved]
  - Hiatus hernia [Recovered/Resolved]
  - Pyrexia [Recovered/Resolved]

NARRATIVE: CASE EVENT DATE: 20110324
